FAERS Safety Report 4964454-4 (Version None)
Quarter: 2006Q1

REPORT INFORMATION
  Report Type: 
  Country: None (occurrence: None)
  Receive Date: 20060331
  Receipt Date: 20060323
  Transmission Date: 20060701
  Serious: Yes (Death, Other)
  Sender: FDA-Public Use
  Company Number: 2006US000568

PATIENT
  Age: 10 Year
  Sex: Female

DRUGS (3)
  1. PROGRAF [Suspect]
     Indication: PROPHYLAXIS AGAINST TRANSPLANT REJECTION
  2. SIROLIMUS (SIROLIMUS) [Concomitant]
  3. PREDNISONE TAB [Concomitant]

REACTIONS (8)
  - ABDOMINAL PAIN [None]
  - DIARRHOEA [None]
  - HEADACHE [None]
  - MULTI-ORGAN FAILURE [None]
  - PYREXIA [None]
  - TOXOPLASMOSIS [None]
  - TRANSPLANT REJECTION [None]
  - VOMITING [None]
